FAERS Safety Report 6016760-2 (Version None)
Quarter: 2008Q4

REPORT INFORMATION
  Report Type: 
  Country: None (occurrence: None)
  Receive Date: 20081222
  Receipt Date: 20081216
  Transmission Date: 20090506
  Serious: Yes (Other)
  Sender: FDA-Public Use
  Company Number: AU-B.I. PHARMACEUTICALS,INC./RIDGEFIELD-2008-BP-18724AU

PATIENT
  Sex: Male

DRUGS (1)
  1. MOBIC [Suspect]

REACTIONS (1)
  - SURGERY [None]
